FAERS Safety Report 5013760-6 (Version None)
Quarter: 2006Q2

REPORT INFORMATION
  Report Type: 
  Country: None (occurrence: None)
  Receive Date: 20060526
  Receipt Date: 20060526
  Transmission Date: 20061013
  Serious: No
  Sender: FDA-Public Use
  Company Number: None

PATIENT
  Age: 70 Year
  Sex: Male

DRUGS (2)
  1. TEQUIN [Suspect]
     Dosage: SOLUTION
  2. CIPRO [Suspect]
     Dosage: POWDER WITH DILUENT

REACTIONS (4)
  - DRUG DISPENSING ERROR [None]
  - DRUG PRESCRIBING ERROR [None]
  - MEDICATION ERROR [None]
  - OVERDOSE [None]
